FAERS Safety Report 8413594-6 (Version None)
Quarter: 2012Q2

REPORT INFORMATION
  Report Type: 
  Country: None (occurrence: None)
  Receive Date: 20120605
  Receipt Date: 20120523
  Transmission Date: 20120825
  Serious: Yes (Other)
  Sender: FDA-Public Use
  Company Number: JP-ROCHE-1056399

PATIENT
  Age: 75 Year
  Sex: Male
  Weight: 66 kg

DRUGS (11)
  1. KYTRIL [Concomitant]
     Indication: PROPHYLAXIS
     Dosage: 3MG BAG
     Route: 041
     Dates: start: 20110912, end: 20111012
  2. EMEND [Concomitant]
     Route: 048
     Dates: start: 20110913, end: 20111013
  3. FAMOTIDINE [Concomitant]
     Indication: PROPHYLAXIS
     Route: 042
     Dates: start: 20110912, end: 20111012
  4. DEXAMETHASONE SODIUM PHOSPHATE [Concomitant]
     Indication: PROPHYLAXIS
     Route: 041
     Dates: start: 20110912, end: 20111012
  5. CARBOPLATIN [Suspect]
     Indication: LUNG ADENOCARCINOMA METASTATIC
     Route: 041
     Dates: start: 20110912, end: 20111012
  6. VENA [Concomitant]
     Indication: PROPHYLAXIS
     Route: 048
     Dates: start: 20110912, end: 20111012
  7. EMEND [Concomitant]
     Indication: PROPHYLAXIS
     Route: 048
     Dates: start: 20110912, end: 20111012
  8. AVASTIN [Suspect]
     Dosage: DOSAGE IS UNCERTAIN.
     Route: 041
     Dates: start: 20111128, end: 20111219
  9. DECADRON [Concomitant]
     Indication: PROPHYLAXIS
     Route: 048
     Dates: start: 20110913, end: 20111015
  10. AVASTIN [Suspect]
     Indication: LUNG ADENOCARCINOMA METASTATIC
     Route: 041
     Dates: start: 20110912, end: 20110101
  11. PACLITAXEL [Suspect]
     Indication: LUNG ADENOCARCINOMA METASTATIC
     Route: 041
     Dates: start: 20110912, end: 20111012

REACTIONS (2)
  - NEUTROPHIL COUNT DECREASED [None]
  - INTERSTITIAL LUNG DISEASE [None]
